FAERS Safety Report 7992341-6 (Version None)
Quarter: 2011Q4

REPORT INFORMATION
  Report Type: 
  Country: None (occurrence: None)
  Receive Date: 20111219
  Receipt Date: 20101018
  Transmission Date: 20120403
  Serious: No
  Sender: FDA-Public Use
  Company Number: US-ASTRAZENECA-2010SE26496

PATIENT
  Age: 61 Year
  Sex: Female

DRUGS (12)
  1. ACYCLOVIR [Concomitant]
     Route: 048
  2. LEXAPRO [Concomitant]
     Route: 048
  3. VASOTEC [Concomitant]
     Route: 048
  4. ZETIA [Concomitant]
     Route: 048
  5. TOPROL-XL [Concomitant]
     Route: 048
  6. PRAVASTATIN [Concomitant]
     Route: 048
  7. HYDROCHLOROTHIAZIDE [Concomitant]
     Route: 048
  8. ZOVIRAX [Concomitant]
     Dosage: ONE APPLICATION EVERY 2 HOURS
     Route: 065
  9. CRESTOR [Suspect]
     Indication: HYPERCHOLESTEROLAEMIA
     Route: 048
  10. ZOLPIDEM [Concomitant]
     Route: 048
  11. NEXIUM [Concomitant]
     Route: 048
  12. CLONIDINE [Concomitant]
     Route: 048

REACTIONS (4)
  - ARTHRALGIA [None]
  - DRUG HYPERSENSITIVITY [None]
  - JOINT SWELLING [None]
  - MYALGIA [None]
